FAERS Safety Report 18354274 (Version 3)
Quarter: 2020Q4

REPORT INFORMATION
  Report Type: Spontaneous
  Country: US (occurrence: US)
  Receive Date: 20201007
  Receipt Date: 20201030
  Transmission Date: 20210114
  Serious: Yes (Hospitalization, Other)
  Sender: FDA-Public Use
  Company Number: US-SUNOVION-2020SUN002805

PATIENT
  Sex: Female

DRUGS (2)
  1. LATUDA [Suspect]
     Active Substance: LURASIDONE HYDROCHLORIDE
     Dosage: LESS THAN 20 MG
     Route: 048
     Dates: start: 201801
  2. LATUDA [Suspect]
     Active Substance: LURASIDONE HYDROCHLORIDE
     Indication: BIPOLAR I DISORDER
     Dosage: 20 MG
     Route: 048

REACTIONS (7)
  - Psychotic disorder [Unknown]
  - Depressed mood [Unknown]
  - Prescribed underdose [Unknown]
  - Malaise [Unknown]
  - Suicidal ideation [Unknown]
  - Mania [Unknown]
  - Insomnia [Unknown]
